FAERS Safety Report 5721393-9 (Version None)
Quarter: 2008Q2

REPORT INFORMATION
  Report Type: 
  Country: None (occurrence: None)
  Receive Date: 20080429
  Receipt Date: 20080414
  Transmission Date: 20081010
  Serious: Yes (Hospitalization)
  Sender: FDA-Public Use
  Company Number: JP-JNJFOC-20080201014

PATIENT
  Sex: Female

DRUGS (5)
  1. LEVOFLOXACIN [Suspect]
     Indication: URINARY TRACT INFECTION
     Route: 048
  2. ADOAIR [Suspect]
     Indication: DRUG USE FOR UNKNOWN INDICATION
     Route: 055
  3. URSO 250 [Concomitant]
     Route: 065
  4. APLACE [Concomitant]
     Route: 065
  5. ALPAROL [Concomitant]
     Route: 065

REACTIONS (1)
  - INTERSTITIAL LUNG DISEASE [None]
